FAERS Safety Report 23369567 (Version 3)
Quarter: 2024Q1

REPORT INFORMATION
  Report Type: Report from Study
  Country: FR (occurrence: FR)
  Receive Date: 20240105
  Receipt Date: 20240227
  Transmission Date: 20240410
  Serious: Yes (Hospitalization, Other)
  Sender: FDA-Public Use
  Company Number: FR-002147023-NVSC2023FR083729

PATIENT
  Sex: Female
  Weight: 86 kg

DRUGS (4)
  1. KISQALI [Suspect]
     Active Substance: RIBOCICLIB
     Indication: Breast cancer metastatic
     Dosage: 600 MG, QD
     Route: 048
     Dates: start: 20230220, end: 20230312
  2. KISQALI [Suspect]
     Active Substance: RIBOCICLIB
     Dosage: 600 MG, QD
     Route: 048
     Dates: start: 20230403, end: 20230423
  3. KISQALI [Suspect]
     Active Substance: RIBOCICLIB
     Dosage: 600 MG, QD
     Route: 048
     Dates: start: 20230515, end: 20230604
  4. KISQALI [Suspect]
     Active Substance: RIBOCICLIB
     Dosage: 600 MG, QD
     Route: 048
     Dates: start: 20230822, end: 20230912

REACTIONS (23)
  - Cholestasis [Recovered/Resolved]
  - Neutropenia [Recovered/Resolved]
  - Neutropenia [Recovered/Resolved]
  - Neutropenia [Recovered/Resolved]
  - Neutropenia [Recovered/Resolved]
  - Neutropenia [Recovered/Resolved]
  - Hepatic cytolysis [Recovered/Resolved]
  - Hot flush [Recovered/Resolved]
  - Myalgia [Recovered/Resolved]
  - Insomnia [Recovered/Resolved]
  - Dry mouth [Recovered/Resolved]
  - Nausea [Recovered/Resolved]
  - Dry skin [Recovered/Resolved]
  - Asthenia [Recovered/Resolved]
  - Vulvovaginal mycotic infection [Recovered/Resolved]
  - COVID-19 [Recovered/Resolved]
  - Pruritus [Recovered/Resolved]
  - Influenza like illness [Recovered/Resolved]
  - Lichen planus [Not Recovered/Not Resolved]
  - Lithiasis [Unknown]
  - Fatigue [Unknown]
  - Abdominal pain [Unknown]
  - Jaundice [Unknown]

NARRATIVE: CASE EVENT DATE: 20230301
